FAERS Safety Report 4520235-7 (Version None)
Quarter: 2004Q4

REPORT INFORMATION
  Report Type: 
  Country: None (occurrence: None)
  Receive Date: 20041207
  Receipt Date: 20041202
  Transmission Date: 20050328
  Serious: Yes (Death, Life-Threatening)
  Sender: FDA-Public Use
  Company Number: PHBS2004PL16339

PATIENT
  Age: 29 Year
  Sex: Female

DRUGS (1)
  1. CLOZAPINE [Suspect]
     Indication: SCHIZOPHRENIA, PARANOID TYPE
     Dosage: 800 MG, ONCE/SINGLE
     Route: 065

REACTIONS (7)
  - CARDIAC ARREST [None]
  - CENTRAL NERVOUS SYSTEM LESION [None]
  - DEPRESSED LEVEL OF CONSCIOUSNESS [None]
  - DRUG TOXICITY [None]
  - PNEUMONIA [None]
  - RESPIRATORY FAILURE [None]
  - SHOCK [None]
